FAERS Safety Report 6805624-X (Version None)
Quarter: 2010Q2

REPORT INFORMATION
  Report Type: 
  Country: None (occurrence: None)
  Receive Date: 20100628
  Receipt Date: 20080123
  Transmission Date: 20101027
  Serious: Yes (Other)
  Sender: FDA-Public Use
  Company Number: US-PFIZER INC-2008007813

PATIENT
  Sex: Female
  Weight: 77 kg

DRUGS (8)
  1. GEODON [Suspect]
     Indication: ANXIETY
     Dates: end: 20071023
  2. GEODON [Suspect]
     Indication: DEPRESSION
  3. LISINOPRIL [Concomitant]
  4. NEXIUM [Concomitant]
  5. CLARITIN [Concomitant]
  6. CYMBALTA [Concomitant]
  7. TENEX [Concomitant]
  8. FLAXSEED OIL [Concomitant]

REACTIONS (1)
  - TARDIVE DYSKINESIA [None]
